FAERS Safety Report 22381847 (Version 2)
Quarter: 2023Q2

REPORT INFORMATION
  Report Type: Report from Study
  Country: US (occurrence: US)
  Receive Date: 20230530
  Receipt Date: 20230605
  Transmission Date: 20230722
  Serious: No
  Sender: FDA-Public Use
  Company Number: US-002147023-NVSC2023US119061

PATIENT
  Age: 61 Year
  Sex: Male

DRUGS (1)
  1. KESIMPTA [Suspect]
     Active Substance: OFATUMUMAB
     Indication: Relapsing multiple sclerosis
     Dosage: 20 MG, QMO
     Route: 058
     Dates: start: 20221226

REACTIONS (3)
  - Disturbance in attention [Unknown]
  - Muscle spasms [Unknown]
  - Sleep disorder [Unknown]

NARRATIVE: CASE EVENT DATE: 20230523
